FAERS Safety Report 25416104 (Version 1)
Quarter: 2025Q2

REPORT INFORMATION
  Report Type: Spontaneous
  Country: TW (occurrence: TW)
  Receive Date: 20250610
  Receipt Date: 20250610
  Transmission Date: 20250717
  Serious: Yes (Other)
  Sender: SANDOZ
  Company Number: TW-TFDA-TDS-1140006238

PATIENT
  Age: 0 Year
  Sex: Male

DRUGS (16)
  1. VANCOMYCIN HYDROCHLORIDE [Suspect]
     Active Substance: VANCOMYCIN HYDROCHLORIDE
     Indication: Product used for unknown indication
     Route: 065
     Dates: start: 20250315, end: 20250320
  2. VANCOMYCIN HYDROCHLORIDE [Suspect]
     Active Substance: VANCOMYCIN HYDROCHLORIDE
     Route: 065
     Dates: start: 20250331, end: 20250405
  3. AMOXICILLIN [Concomitant]
     Active Substance: AMOXICILLIN
     Indication: Drug reaction with eosinophilia and systemic symptoms
     Route: 065
     Dates: start: 20250425, end: 20250429
  4. CETIRIZINE [Concomitant]
     Active Substance: CETIRIZINE HYDROCHLORIDE
     Indication: Drug hypersensitivity
     Dosage: 2.5 ML, QHS ML
     Route: 048
     Dates: start: 20250414, end: 20250415
  5. CETIRIZINE [Concomitant]
     Active Substance: CETIRIZINE HYDROCHLORIDE
     Indication: Drug reaction with eosinophilia and systemic symptoms
  6. CYPROHEPTADINE [Concomitant]
     Active Substance: CYPROHEPTADINE
     Indication: Drug hypersensitivity
     Route: 048
     Dates: start: 20250407, end: 20250412
  7. CYPROHEPTADINE [Concomitant]
     Active Substance: CYPROHEPTADINE
     Indication: Drug reaction with eosinophilia and systemic symptoms
  8. HYDROCORTISONE [Concomitant]
     Active Substance: HYDROCORTISONE
     Indication: Skin lesion
     Dosage: UNK UNK, BID
     Route: 061
     Dates: start: 20250509, end: 20250512
  9. HYDROCORTISONE [Concomitant]
     Active Substance: HYDROCORTISONE
     Indication: Drug reaction with eosinophilia and systemic symptoms
  10. METHYLPREDNISOLONE [Concomitant]
     Active Substance: METHYLPREDNISOLONE
     Indication: Drug hypersensitivity
     Route: 042
     Dates: start: 20250409
  11. METHYLPREDNISOLONE [Concomitant]
     Active Substance: METHYLPREDNISOLONE
     Indication: Drug reaction with eosinophilia and systemic symptoms
     Route: 042
     Dates: start: 20250419
  12. METHYLPREDNISOLONE [Concomitant]
     Active Substance: METHYLPREDNISOLONE
     Route: 042
     Dates: start: 20250423, end: 20250429
  13. MOMETASONE [Concomitant]
     Active Substance: MOMETASONE
     Indication: Drug reaction with eosinophilia and systemic symptoms
     Route: 061
  14. PHENOBARBITAL [Concomitant]
     Active Substance: PHENOBARBITAL
     Indication: Product used for unknown indication
     Route: 065
     Dates: start: 20250316, end: 20250407
  15. PREDNISOLONE [Concomitant]
     Active Substance: PREDNISOLONE
     Indication: Drug hypersensitivity
     Route: 048
     Dates: start: 20250413, end: 20250416
  16. PREDNISOLONE [Concomitant]
     Active Substance: PREDNISOLONE
     Indication: Drug reaction with eosinophilia and systemic symptoms

REACTIONS (2)
  - Malignant pleural effusion [Recovering/Resolving]
  - Pyrexia [Recovering/Resolving]

NARRATIVE: CASE EVENT DATE: 20250416
